FAERS Safety Report 7340484-2 (Version None)
Quarter: 2011Q1

REPORT INFORMATION
  Report Type: 
  Country: None (occurrence: None)
  Receive Date: 20110228
  Receipt Date: 20110208
  Transmission Date: 20110831
  Serious: Yes (Death)
  Sender: FDA-Public Use
  Company Number: 2011020076

PATIENT
  Age: 21 Year
  Sex: Male

DRUGS (3)
  1. CARISOPRODOL [Suspect]
     Dosage: ORAL
     Route: 048
  2. ALPRAZOLAM [Suspect]
     Dosage: ORAL
     Route: 048
  3. OXYCODONE (OXYCODONE) [Suspect]
     Dosage: ORAL
     Route: 048

REACTIONS (7)
  - LETHARGY [None]
  - RESPIRATORY ARREST [None]
  - DRUG SCREEN POSITIVE [None]
  - TOXICITY TO VARIOUS AGENTS [None]
  - ASPIRATION [None]
  - MIOSIS [None]
  - DEPRESSION [None]
